FAERS Safety Report 19129812 (Version 1)
Quarter: 2021Q2

REPORT INFORMATION
  Report Type: Report from Study
  Country: US (occurrence: US)
  Receive Date: 20210413
  Receipt Date: 20210413
  Transmission Date: 20210717
  Serious: Yes (Other)
  Sender: FDA-Public Use
  Company Number: US-JNJFOC-20210409816

PATIENT
  Age: 74 Year
  Sex: Female

DRUGS (7)
  1. SPRAVATO [Suspect]
     Active Substance: ESKETAMINE
     Indication: DEPRESSION
     Dosage: 56 MG, 3 TOTAL DOSES
     Dates: start: 20191220, end: 20191230
  2. SPRAVATO [Suspect]
     Active Substance: ESKETAMINE
     Dosage: 84 MG, 2 TOTAL DOSES
     Dates: start: 20210304
  3. SPRAVATO [Suspect]
     Active Substance: ESKETAMINE
     Dosage: 56 MG, 3 TOTAL DOSES
     Dates: start: 20200730, end: 20210114
  4. SPRAVATO [Suspect]
     Active Substance: ESKETAMINE
     Dosage: 56 MG, 5 TOTAL DOSES
     Dates: start: 20200109, end: 20200312
  5. SPRAVATO [Suspect]
     Active Substance: ESKETAMINE
     Dosage: 28 MG, 1 TOTAL DOSE
     Dates: start: 20200507, end: 20200507
  6. SPRAVATO [Suspect]
     Active Substance: ESKETAMINE
     Dosage: CURRENT TREATMENT SESSION
     Dates: start: 20210331, end: 20210331
  7. SPRAVATO [Suspect]
     Active Substance: ESKETAMINE
     Dosage: 28 MG, 1 TOTAL DOSE
     Dates: start: 20200103, end: 20200103

REACTIONS (1)
  - Blood pressure increased [Recovered/Resolved]

NARRATIVE: CASE EVENT DATE: 20210331
